FAERS Safety Report 11475348 (Version 1)
Quarter: 2015Q3

REPORT INFORMATION
  Report Type: Spontaneous
  Country: US (occurrence: None)
  Receive Date: 20150908
  Receipt Date: 20150908
  Transmission Date: 20151125
  Serious: No
  Sender: FDA-Public Use
  Company Number: None

PATIENT
  Age: 35 Year
  Sex: Female
  Weight: 40.37 kg

DRUGS (3)
  1. TRANSDERM SCOP [Suspect]
     Active Substance: SCOPOLAMINE
     Indication: NAUSEA
     Dosage: 1 PATCH EVERY 3 DAYS APPLIED AS MEDICATED PATCH TO SKIN
     Dates: start: 20150901, end: 20150905
  2. VSL#3 PROBIOTIC [Concomitant]
  3. TRANSDERM SCOP [Suspect]
     Active Substance: SCOPOLAMINE
     Indication: ABDOMINAL DISCOMFORT
     Dosage: 1 PATCH EVERY 3 DAYS APPLIED AS MEDICATED PATCH TO SKIN
     Dates: start: 20150901, end: 20150905

REACTIONS (6)
  - Disturbance in attention [None]
  - Lymphadenopathy [None]
  - Somnolence [None]
  - Visual impairment [None]
  - Dizziness [None]
  - Dry mouth [None]

NARRATIVE: CASE EVENT DATE: 20150906
